FAERS Safety Report 7534403-3 (Version None)
Quarter: 2011Q2

REPORT INFORMATION
  Report Type: 
  Country: None (occurrence: None)
  Receive Date: 20110608
  Receipt Date: 20110523
  Transmission Date: 20111010
  Serious: No
  Sender: FDA-Public Use
  Company Number: US-AMGEN-USASP2011027367

PATIENT
  Age: 83 Year
  Sex: Female

DRUGS (11)
  1. ASPIRIN [Concomitant]
     Dosage: UNK
  2. LIVALO [Concomitant]
  3. CENTRUM SILVER                     /01292501/ [Concomitant]
  4. PROLIA [Suspect]
     Indication: OSTEOPOROSIS POSTMENOPAUSAL
     Dosage: 60 MG, Q6MO
     Dates: start: 20110303
  5. ENABLEX                            /01760401/ [Concomitant]
     Dosage: UNK
  6. CELEBREX [Concomitant]
  7. CLARITIN-D 24 HOUR [Concomitant]
  8. EXFORGE COMBINATION [Concomitant]
  9. CYMBALTA [Concomitant]
     Dosage: UNK
  10. CALCIUM + VITAMIN D [Concomitant]
  11. CALCIUM CARBONATE [Concomitant]

REACTIONS (4)
  - MEMORY IMPAIRMENT [None]
  - CONTUSION [None]
  - ARTHROPATHY [None]
  - PAIN IN EXTREMITY [None]
